FAERS Safety Report 6296066-7 (Version None)
Quarter: 2009Q3

REPORT INFORMATION
  Report Type: 
  Country: None (occurrence: None)
  Receive Date: 20090804
  Receipt Date: 20090730
  Transmission Date: 20100115
  Serious: Yes (Other)
  Sender: FDA-Public Use
  Company Number: US-BRISTOL-MYERS SQUIBB COMPANY-14723076

PATIENT
  Sex: Female

DRUGS (2)
  1. METFORMIN HCL [Suspect]
  2. DIABETA [Suspect]
     Dosage: DIABETA TABS
     Route: 048
     Dates: start: 20090709

REACTIONS (4)
  - AMNESIA [None]
  - BLOOD GLUCOSE INCREASED [None]
  - HYPERHIDROSIS [None]
  - VISUAL IMPAIRMENT [None]
